FAERS Safety Report 7257079-1 (Version None)
Quarter: 2011Q1

REPORT INFORMATION
  Report Type: 
  Country: None (occurrence: None)
  Receive Date: 20110129
  Receipt Date: 20100630
  Transmission Date: 20110831
  Serious: No
  Sender: FDA-Public Use
  Company Number: US-ABBOTT-10P-163-0654482-00

PATIENT
  Age: 40 Year
  Sex: Female

DRUGS (3)
  1. HUMIRA [Suspect]
     Indication: RHEUMATOID ARTHRITIS
     Dates: start: 20100611
  2. ORTHOTRICYLENE LO [Concomitant]
     Indication: CONTRACEPTION
  3. ARAVA [Concomitant]
     Indication: RHEUMATOID ARTHRITIS

REACTIONS (7)
  - MIGRAINE [None]
  - DYSPHAGIA [None]
  - PHARYNGEAL OEDEMA [None]
  - DYSURIA [None]
  - TONSILLAR INFLAMMATION [None]
  - THROAT IRRITATION [None]
  - OROPHARYNGEAL PAIN [None]
